FAERS Safety Report 23441094 (Version 1)
Quarter: 2024Q1

REPORT INFORMATION
  Report Type: Spontaneous
  Country: IT (occurrence: IT)
  Receive Date: 20240125
  Receipt Date: 20240125
  Transmission Date: 20240409
  Serious: Yes (Other)
  Sender: FDA-Public Use
  Company Number: IT-AMGEN-ITASP2024013113

PATIENT

DRUGS (2)
  1. ADALIMUMAB [Suspect]
     Active Substance: ADALIMUMAB\ISOPROPYL ALCOHOL
     Indication: Uveitis
     Dosage: UNK
     Route: 065
  2. ADALIMUMAB [Suspect]
     Active Substance: ADALIMUMAB\ISOPROPYL ALCOHOL
     Indication: Juvenile idiopathic arthritis

REACTIONS (12)
  - Iris adhesions [Unknown]
  - Macular oedema [Unknown]
  - Ocular hypertension [Unknown]
  - Cataract [Unknown]
  - Uveitis [Unknown]
  - Keratopathy [Unknown]
  - Therapy non-responder [Unknown]
  - Therapy partial responder [Unknown]
  - Infusion related reaction [Unknown]
  - Dermatitis psoriasiform [Unknown]
  - Migraine [Unknown]
  - Mood altered [Unknown]
